FAERS Safety Report 5360470-1 (Version None)
Quarter: 2007Q2

REPORT INFORMATION
  Report Type: 
  Country: None (occurrence: None)
  Receive Date: 20070618
  Receipt Date: 20070612
  Transmission Date: 20071010
  Serious: Yes (Other)
  Sender: FDA-Public Use
  Company Number: A0621979A

PATIENT
  Sex: Female

DRUGS (1)
  1. AVANDIA [Suspect]
     Indication: DRUG USE FOR UNKNOWN INDICATION
     Route: 065
     Dates: start: 20050101

REACTIONS (6)
  - ADVERSE EVENT [None]
  - BLINDNESS [None]
  - MACULAR OEDEMA [None]
  - OEDEMA [None]
  - RENAL IMPAIRMENT [None]
  - VISUAL ACUITY REDUCED [None]
